FAERS Safety Report 8037368-3 (Version None)
Quarter: 2012Q1

REPORT INFORMATION
  Report Type: 
  Country: None (occurrence: None)
  Receive Date: 20120111
  Receipt Date: 20120106
  Transmission Date: 20120608
  Serious: Yes (Hospitalization)
  Sender: FDA-Public Use
  Company Number: US-PFIZER INC-2012004931

PATIENT
  Sex: Female

DRUGS (4)
  1. OXYBUTYNIN [Concomitant]
     Dosage: 5 MG, UNK
  2. LYRICA [Concomitant]
     Dosage: UNK
  3. LIPITOR [Concomitant]
     Dosage: 10 MG, UNK
  4. PROTONIX [Suspect]
     Indication: GASTROOESOPHAGEAL REFLUX DISEASE
     Dosage: 40 MG, 1X/DAY
     Route: 048

REACTIONS (1)
  - LUNG DISORDER [None]
